FAERS Safety Report 9607347 (Version 1)
Quarter: 2013Q4

REPORT INFORMATION
  Report Type: Spontaneous
  Country: FR (occurrence: FR)
  Receive Date: 20131009
  Receipt Date: 20131009
  Transmission Date: 20140711
  Serious: Yes (Other)
  Sender: FDA-Public Use
  Company Number: FR-BAYER-2013-121485

PATIENT
  Age: 60 Year
  Sex: Male

DRUGS (1)
  1. BETAFERON [Suspect]
     Dosage: UNK
     Dates: start: 2010

REACTIONS (1)
  - Thrombosis [Recovered/Resolved]
